FAERS Safety Report 9972872 (Version 5)
Quarter: 2014Q2

REPORT INFORMATION
  Report Type: Report from Study
  Country: GB (occurrence: GB)
  Receive Date: 20140306
  Receipt Date: 20140611
  Transmission Date: 20141212
  Serious: Yes (Life-Threatening, Hospitalization)
  Sender: FDA-Public Use
  Company Number: GB-MPIJNJ-2013JNJ000486

PATIENT
  Sex: 0

DRUGS (16)
  1. VELCADE [Suspect]
     Indication: B-CELL LYMPHOMA
     Dosage: 1.8 MG, UNK
     Route: 065
     Dates: start: 20131011
  2. VELCADE [Suspect]
     Dosage: 1.3 UNK, UNK
     Route: 065
     Dates: start: 20131018, end: 20131018
  3. VELCADE [Suspect]
     Dosage: 1.8 UNK, UNK
     Route: 065
     Dates: end: 20131113
  4. RITUXIMAB [Suspect]
     Indication: B-CELL LYMPHOMA
     Dosage: 700 MG, UNK
     Route: 065
     Dates: start: 20130916, end: 20131106
  5. CYCLOPHOSPHAMIDE [Suspect]
     Indication: B-CELL LYMPHOMA
     Dosage: 1400 MG, UNK
     Route: 065
     Dates: start: 20130917, end: 20131106
  6. VINCRISTINE [Suspect]
     Indication: B-CELL LYMPHOMA
     Dosage: 2 MG, UNK
     Route: 065
     Dates: start: 20130916, end: 20130917
  7. VINCRISTINE [Suspect]
     Dosage: 1 MG, UNK
     Route: 065
     Dates: end: 20131106
  8. DOXORUBICIN [Suspect]
     Indication: B-CELL LYMPHOMA
     Dosage: 70 MG, UNK
     Route: 042
     Dates: start: 20130917, end: 20131106
  9. PREDNISOLONE [Suspect]
     Indication: B-CELL LYMPHOMA
     Dosage: 100 MG, UNK
     Route: 065
     Dates: start: 20130917, end: 20131110
  10. ONDANSETRON [Concomitant]
     Dosage: 16 MG, UNK
     Route: 048
     Dates: start: 20131011, end: 20131018
  11. OMEPRAZOLE [Concomitant]
     Dosage: 40 MG, UNK
     Route: 048
     Dates: start: 20131011, end: 20131015
  12. DOMPERIDONE [Concomitant]
     Dosage: 10 MG, UNK
     Route: 048
     Dates: start: 20131013, end: 20131015
  13. LENOGRASTIM [Concomitant]
     Dosage: 263 MCG,
     Route: 058
     Dates: start: 20131018
  14. CHLORPHENIRAMINE                   /00072501/ [Concomitant]
     Dosage: 10 MG, UNK
     Route: 042
     Dates: start: 20130916, end: 20130916
  15. HYDROCORTISONE [Concomitant]
     Dosage: 100 MG, UNK
     Route: 042
     Dates: start: 20130916, end: 20130916
  16. PARACETAMOL [Concomitant]
     Dosage: 1000 MG, UNK
     Route: 048
     Dates: start: 20130916, end: 20130916

REACTIONS (4)
  - Hypophosphataemia [Recovered/Resolved]
  - Infection [Recovered/Resolved]
  - Infection [Recovered/Resolved]
  - Pyrexia [Recovered/Resolved]
